FAERS Safety Report 4445582-9 (Version None)
Quarter: 2004Q3

REPORT INFORMATION
  Report Type: 
  Country: None (occurrence: None)
  Receive Date: 20040903
  Receipt Date: 20040820
  Transmission Date: 20050211
  Serious: Yes (Death, Life-Threatening, Hospitalization)
  Sender: FDA-Public Use
  Company Number: 8006959

PATIENT
  Age: 49 Year
  Sex: Male
  Weight: 68 kg

DRUGS (3)
  1. KEPPRA [Suspect]
     Indication: EPILEPSY
     Dosage: 1000 MG/D PO
     Route: 048
     Dates: start: 20040218, end: 20040425
  2. KEPPRA [Suspect]
     Indication: EPILEPSY
     Dosage: 1500 MG /D PO
     Route: 048
     Dates: start: 20040426, end: 20040718
  3. KEPPRA [Suspect]
     Indication: EPILEPSY
     Dosage: 2000 MG/D PO
     Route: 048
     Dates: start: 20040719

REACTIONS (8)
  - BRAIN OEDEMA [None]
  - CARDIAC ARREST [None]
  - FALL [None]
  - GASTROINTESTINAL NECROSIS [None]
  - HYPOXIC ENCEPHALOPATHY [None]
  - PERITONITIS [None]
  - RESUSCITATION [None]
  - SEPSIS [None]
